FAERS Safety Report 11409097 (Version 1)
Quarter: 2015Q3

REPORT INFORMATION
  Report Type: Report from Study
  Country: US (occurrence: MX)
  Receive Date: 20150824
  Receipt Date: 20150824
  Transmission Date: 20151125
  Serious: Yes (Other)
  Sender: FDA-Public Use
  Company Number: US-ROCHE-1453323

PATIENT
  Sex: Female
  Weight: 10.4 kg

DRUGS (4)
  1. NUTROPIN [Suspect]
     Active Substance: SOMATROPIN
     Route: 058
  2. NUTROPIN [Suspect]
     Active Substance: SOMATROPIN
     Indication: GROWTH HORMONE DEFICIENCY
     Route: 065
  3. NUTROPIN [Suspect]
     Active Substance: SOMATROPIN
     Route: 058
  4. NUTROPIN [Suspect]
     Active Substance: SOMATROPIN
     Route: 058

REACTIONS (9)
  - Irritability [Unknown]
  - Anger [Unknown]
  - Cardiac murmur [Unknown]
  - Hypertension [Unknown]
  - Growth retardation [Unknown]
  - Insomnia [Unknown]
  - Aggression [Unknown]
  - Vesicoureteric reflux [Unknown]
  - Energy increased [Unknown]
